FAERS Safety Report 25815559 (Version 1)
Quarter: 2025Q3

REPORT INFORMATION
  Report Type: Spontaneous
  Country: GB (occurrence: GB)
  Receive Date: 20250918
  Receipt Date: 20250918
  Transmission Date: 20251020
  Serious: Yes (Other)
  Sender: OCTAPHARMA
  Company Number: GB-OCTA-2025000840

PATIENT
  Age: 2 Week

DRUGS (1)
  1. OCTAGAM IMMUNE GLOBULIN (HUMAN) [Suspect]
     Active Substance: HUMAN IMMUNOGLOBULIN G
     Indication: Product used for unknown indication
     Route: 064

REACTIONS (3)
  - Misleading laboratory test result [Unknown]
  - Syphilis test false positive [Unknown]
  - Foetal exposure during pregnancy [Unknown]
